FAERS Safety Report 18533246 (Version 3)
Quarter: 2020Q4

REPORT INFORMATION
  Report Type: Report from Study
  Country: US (occurrence: US)
  Receive Date: 20201123
  Receipt Date: 20201229
  Transmission Date: 20210114
  Serious: Yes (Other)
  Sender: FDA-Public Use
  Company Number: US-AMGEN-USASL2020148912

PATIENT
  Age: 62 Year
  Sex: Female

DRUGS (2)
  1. REPATHA [Suspect]
     Active Substance: EVOLOCUMAB
     Indication: HYPERCHOLESTEROLAEMIA
     Dosage: 140 MILLIGRAM, Q2WK
     Route: 058
     Dates: start: 20200812, end: 20201109
  2. REPATHA [Suspect]
     Active Substance: EVOLOCUMAB
     Indication: BLOOD CHOLESTEROL ABNORMAL

REACTIONS (11)
  - Arthralgia [Unknown]
  - Musculoskeletal disorder [Unknown]
  - Pain [Unknown]
  - Pain in extremity [Unknown]
  - Muscular weakness [Unknown]
  - Sleep disorder due to a general medical condition [Unknown]
  - Myalgia [Unknown]
  - Burning sensation [Unknown]
  - Back pain [Recovering/Resolving]
  - Neck pain [Recovering/Resolving]
  - Vertebral foraminal stenosis [Unknown]
